FAERS Safety Report 21955721 (Version 2)
Quarter: 2023Q1

REPORT INFORMATION
  Report Type: Spontaneous
  Country: US (occurrence: US)
  Receive Date: 20230206
  Receipt Date: 20230213
  Transmission Date: 20230417
  Serious: No
  Sender: FDA-Public Use
  Company Number: US-LEO Pharma-348248

PATIENT
  Sex: Male

DRUGS (4)
  1. ADBRY [Suspect]
     Active Substance: TRALOKINUMAB-LDRM
     Indication: Dermatitis atopic
     Dosage: 4 SYRINGES FOR THE INITIAL DOSE, INTO ABDOMEN
     Dates: start: 20221204, end: 20221204
  2. ADBRY [Suspect]
     Active Substance: TRALOKINUMAB-LDRM
     Indication: Dermatitis atopic
     Dosage: 4 SYRINGES FOR THE INITIAL DOSE, INTO ABDOMEN
     Dates: start: 20221204, end: 20221204
  3. ADBRY [Suspect]
     Active Substance: TRALOKINUMAB-LDRM
     Indication: Dermatitis atopic
     Dosage: 4 SYRINGES FOR THE INITIAL DOSE, INTO ABDOMEN
     Dates: start: 20221204, end: 20221204
  4. ADBRY [Suspect]
     Active Substance: TRALOKINUMAB-LDRM
     Indication: Dermatitis atopic
     Dosage: 4 SYRINGES FOR THE INITIAL DOSE, INTO ABDOMEN
     Dates: start: 20221204, end: 20221204

REACTIONS (6)
  - Headache [Unknown]
  - Lower respiratory tract infection [Unknown]
  - Cough [Unknown]
  - Nasopharyngitis [Unknown]
  - Leukopenia [Unknown]
  - Influenza A virus test positive [Unknown]

NARRATIVE: CASE EVENT DATE: 20221205
